FAERS Safety Report 11604782 (Version 2)
Quarter: 2015Q4

REPORT INFORMATION
  Report Type: Spontaneous
  Country: PL (occurrence: PL)
  Receive Date: 20151007
  Receipt Date: 20151015
  Transmission Date: 20160304
  Serious: Yes (Hospitalization)
  Sender: FDA-Public Use
  Company Number: PL-NOVOPROD-465500

PATIENT
  Age: 83 Year
  Sex: Female

DRUGS (6)
  1. MIXTARD HUMAN 70/30 [Suspect]
     Active Substance: INSULIN HUMAN
     Indication: TYPE 2 DIABETES MELLITUS
     Dosage: 30 U, BID(30 UNITS BEFORE BREAKFAST + 30 UNITS BEFORE EVENING MEAL)
     Route: 065
  2. INSULIN ASPART [Suspect]
     Active Substance: INSULIN ASPART
     Dosage: BEFORE MAIN MEAL (5 UNITS) AND BEFORE
     Route: 065
     Dates: start: 201403
  3. MIXTARD HUMAN 70/30 [Suspect]
     Active Substance: INSULIN HUMAN
     Dosage: BEFORE BREAKFAST (30 UNITS)
     Route: 065
     Dates: start: 201403
  4. NOVOMIX 30 [Suspect]
     Active Substance: INSULIN ASPART
     Indication: TYPE 2 DIABETES MELLITUS
     Dosage: 10 UNITS
     Route: 065
     Dates: start: 201308, end: 201403
  5. NPH                                /00030513/ [Concomitant]
     Dosage: 12 UNITS AT BED-TIME
     Route: 065
  6. INSULIN ASPART [Suspect]
     Active Substance: INSULIN ASPART
     Indication: TYPE 2 DIABETES MELLITUS
     Dosage: 10 UNITS
     Route: 065
     Dates: start: 201107

REACTIONS (4)
  - Hypertensive crisis [Unknown]
  - Hyperglycaemia [Recovered/Resolved]
  - Diabetic metabolic decompensation [Unknown]
  - Diabetic metabolic decompensation [Unknown]

NARRATIVE: CASE EVENT DATE: 201107
